FAERS Safety Report 21246518 (Version 3)
Quarter: 2022Q3

REPORT INFORMATION
  Report Type: Spontaneous
  Country: AU (occurrence: AU)
  Receive Date: 20220824
  Receipt Date: 20220922
  Transmission Date: 20221026
  Serious: Yes (Hospitalization, Other)
  Sender: FDA-Public Use
  Company Number: AU-AMGEN-AUSSP2022142526

PATIENT
  Sex: Male

DRUGS (1)
  1. BLINCYTO [Suspect]
     Active Substance: BLINATUMOMAB
     Indication: Acute lymphocytic leukaemia recurrent
     Dosage: UNK
     Route: 065
     Dates: start: 20220810, end: 20220906

REACTIONS (3)
  - Actinomycotic pulmonary infection [Unknown]
  - Neutropenic sepsis [Recovering/Resolving]
  - Pneumonia [Recovering/Resolving]
